FAERS Safety Report 18017215 (Version 1)
Quarter: 2020Q3

REPORT INFORMATION
  Report Type: Report from Study
  Country: FR (occurrence: FR)
  Receive Date: 20200714
  Receipt Date: 20200714
  Transmission Date: 20201103
  Serious: Yes (Other)
  Sender: FDA-Public Use
  Company Number: FR-EMD SERONO-9173072

PATIENT
  Age: 37 Year
  Sex: Female

DRUGS (1)
  1. GONAL?F [Suspect]
     Active Substance: FOLLITROPIN
     Indication: PRODUCT USED FOR UNKNOWN INDICATION

REACTIONS (1)
  - Ectopic pregnancy [Unknown]

NARRATIVE: CASE EVENT DATE: 20190806
